FAERS Safety Report 15746608 (Version 1)
Quarter: 2018Q4

REPORT INFORMATION
  Report Type: Spontaneous
  Country: US (occurrence: US)
  Receive Date: 20181220
  Receipt Date: 20181220
  Transmission Date: 20190205
  Serious: No
  Sender: FDA-Public Use
  Company Number: US-PRINSTON PHARMACEUTICAL INC.-2018PRN00845

PATIENT
  Sex: Female

DRUGS (2)
  1. VALSARTAN. [Suspect]
     Active Substance: VALSARTAN
     Indication: HYPERTENSION
     Dosage: 40 MG
     Route: 048
     Dates: start: 20180423
  2. VALSARTAN. [Suspect]
     Active Substance: VALSARTAN
     Dosage: 40 MG
     Route: 048
     Dates: start: 20180423

REACTIONS (1)
  - Rash [Not Recovered/Not Resolved]
